FAERS Safety Report 5815856-5 (Version None)
Quarter: 2008Q3

REPORT INFORMATION
  Report Type: 
  Country: None (occurrence: None)
  Receive Date: 20080721
  Receipt Date: 20080424
  Transmission Date: 20090109
  Serious: No
  Sender: FDA-Public Use
  Company Number: US-BAYER-200821158NA

PATIENT
  Age: 29 Year
  Sex: Female
  Weight: 86 kg

DRUGS (8)
  1. MIRENA [Suspect]
     Indication: CONTRACEPTION
     Route: 015
     Dates: start: 20080408
  2. SEASONELLE [Concomitant]
     Indication: ORAL CONTRACEPTION
  3. LUPRON [Concomitant]
  4. ROBAXIN [Concomitant]
  5. TRAMEDOL [Concomitant]
  6. NEURONTIN [Concomitant]
  7. TYLENOL [Concomitant]
     Indication: PAIN
  8. DARVOCET [Concomitant]
     Indication: PAIN

REACTIONS (3)
  - COMPLICATION OF DEVICE INSERTION [None]
  - PAIN [None]
  - PYREXIA [None]
